FAERS Safety Report 14674225 (Version 1)
Quarter: 2018Q1

REPORT INFORMATION
  Report Type: Spontaneous
  Country: US (occurrence: US)
  Receive Date: 20180323
  Receipt Date: 20180323
  Transmission Date: 20180509
  Serious: No
  Sender: FDA-Public Use
  Company Number: US-PERRIGO-17US031631

PATIENT
  Age: 42 Year
  Sex: Female
  Weight: 77.98 kg

DRUGS (1)
  1. MIDOL LONG LASTING RELIEF [Suspect]
     Active Substance: ACETAMINOPHEN
     Indication: PAIN
     Dosage: 1300 MG, EVERY 2 TO 3 HOURS
     Route: 048
     Dates: start: 201708, end: 201711

REACTIONS (3)
  - Overdose [Recovered/Resolved]
  - Incorrect drug administration duration [Recovered/Resolved]
  - Drug ineffective [Unknown]

NARRATIVE: CASE EVENT DATE: 201708
